FAERS Safety Report 11540599 (Version 1)
Quarter: 2015Q3

REPORT INFORMATION
  Report Type: Spontaneous
  Country: US (occurrence: US)
  Receive Date: 20150923
  Receipt Date: 20150923
  Transmission Date: 20151125
  Serious: No
  Sender: FDA-Public Use
  Company Number: US-BEH-2015050702

PATIENT
  Age: 58 Year
  Sex: Female
  Weight: 97.5 kg

DRUGS (41)
  1. TRAZODONE HCL 50MG TABLET [Concomitant]
     Dosage: 1 TAB HS
     Route: 048
  2. TECFIDERA [Concomitant]
     Active Substance: DIMETHYL FUMARATE
     Dosage: 240 MG BID
     Route: 048
  3. ACETAMINOPHEN. [Concomitant]
     Active Substance: ACETAMINOPHEN
     Dosage: 325 MG UD
     Route: 048
  4. CHLORTHALIDONE 25 MG [Concomitant]
     Dosage: 12.5 MG DAILY
     Route: 048
  5. LOSARTAN POTASSIUM. [Concomitant]
     Active Substance: LOSARTAN POTASSIUM
     Route: 048
  6. DOXYCYCLINE HYCLATE 100 MG [Concomitant]
     Dosage: 1 CAPSULE
     Route: 048
  7. ALBUTEROL 0.083% INHALATION SOLUTION [Concomitant]
     Dosage: 3 UNIT UD
  8. FLEXERIL 5 MG TABLET [Concomitant]
     Dosage: 1 TAB TID
     Route: 048
  9. LEVOXYL 50MCG [Concomitant]
     Dosage: 50 MCG, 1 EA QAM
     Route: 048
  10. PRIVIGEN [Suspect]
     Active Substance: HUMAN IMMUNOGLOBULIN G
     Route: 042
  11. SODIUM CHLORIDE. [Concomitant]
     Active Substance: SODIUM CHLORIDE
     Dosage: 0.9% 1-50 ML
     Route: 042
  12. LYRICA [Concomitant]
     Active Substance: PREGABALIN
     Dosage: 1 CAPSULE TID
     Route: 048
  13. CALCIUM 600 MG CAPLET [Concomitant]
     Dosage: 1 CAPSULE TID
  14. NITROSTAT 0.4 MG TABLET SL [Concomitant]
     Dosage: 1 EA UD
     Route: 060
  15. POTASSIUM CL ER 20 MEQ TABLET [Concomitant]
     Dosage: 20 MEQ, 1 EA QAM
     Route: 048
  16. MIRALAX 17G/DOSE POWDER [Concomitant]
     Dosage: 17 G / DOSE POWDER
     Route: 048
  17. AUGMENTIN 875-125 TABLET [Concomitant]
     Dosage: 875-125 MG 1 TAB Q 12 H
     Route: 048
  18. SPIRIVA 18 MCG CP HANDI INHALER [Concomitant]
     Dosage: 1 DOSE DAILY- 18 MCG
  19. MYCOPHENOLATE 500 MG TABLET [Concomitant]
     Dosage: 2 TAB BID
     Route: 048
  20. IBUPROFEN 800 MG TABLET [Concomitant]
     Dosage: 1 TAB BID
     Route: 048
  21. VITAMIN D 10,000 [Concomitant]
     Dosage: 5 EACH WEEKLY
     Route: 048
  22. PRIVIGEN [Suspect]
     Active Substance: HUMAN IMMUNOGLOBULIN G
     Indication: SYSTEMIC LUPUS ERYTHEMATOSUS
     Route: 042
  23. MORPHINE SULFATE ER 60 MG TABLET SA [Concomitant]
     Dosage: 1 TAB Q8H
     Route: 048
  24. FOLIC ACID. [Concomitant]
     Active Substance: FOLIC ACID
     Dosage: 3 MG DAILY
     Route: 048
  25. PREDNISONE. [Concomitant]
     Active Substance: PREDNISONE
     Dosage: 4 TAB DAILY
     Route: 048
  26. LANTUS [Concomitant]
     Active Substance: INSULIN GLARGINE
     Dosage: 72 UNITS BID
     Route: 058
  27. ISOSORBIDE MONONITRATE. [Concomitant]
     Active Substance: ISOSORBIDE MONONITRATE
     Dosage: 1 TAB DAILY
     Route: 048
  28. ADVAIR 250-50 DISKUS [Concomitant]
     Dosage: 1 DOSE QAM
  29. MAGNESIUM OXIDE 400 MG TABLET [Concomitant]
     Dosage: 1 TAB DAILY
     Route: 048
  30. HUMALOG 100/ML VIAL [Concomitant]
     Dosage: 1 DOSE UD
  31. PLAQUENIL [Concomitant]
     Active Substance: HYDROXYCHLOROQUINE SULFATE
     Dosage: 1 TAB BID
     Route: 048
  32. PRAVASTATIN SODIUM. [Concomitant]
     Active Substance: PRAVASTATIN SODIUM
     Dosage: 1 TAB 4 XW
  33. ROCEPHIN 1 GM VIAL [Concomitant]
     Dosage: 1 DOSE UD
     Route: 048
  34. PROAIR HFA 90 MCG INHALER [Concomitant]
     Dosage: 1 DOSE (90 MCG) TID, 270 MCG
  35. DIPHENHYDRAMINE. [Concomitant]
     Active Substance: DIPHENHYDRAMINE
     Dosage: 25 MG UD
     Route: 048
  36. EPIPEN AUTOINJECTOR [Concomitant]
     Dosage: 0.3% MG PRN ANA
     Route: 030
  37. METOPROLOL SUCCINATE. [Concomitant]
     Active Substance: METOPROLOL SUCCINATE
     Dosage: 1 TABLET BID
     Route: 048
  38. GNP VITAMIN B-12 500 MCG TAB [Concomitant]
     Dosage: QPM
     Route: 048
  39. SALAGEN 5 MG TABLET [Concomitant]
  40. PRILOSEC 20 MG CAPSULE [Concomitant]
     Dosage: 1 EACH QAM
     Route: 048
  41. ATELVIA DR 35 MG [Concomitant]
     Dosage: 1 EACH WEEKLY
     Route: 048

REACTIONS (1)
  - Bronchitis [Unknown]

NARRATIVE: CASE EVENT DATE: 20150420
